FAERS Safety Report 20969211 (Version 44)
Quarter: 2022Q4

REPORT INFORMATION
  Report Type: Spontaneous
  Country: GB (occurrence: GB)
  Receive Date: 20220616
  Receipt Date: 20221211
  Transmission Date: 20230113
  Serious: Yes (Death, Hospitalization, Congenital Anomaly, Other)
  Sender: FDA-Public Use
  Company Number: GB-009507513-1806GBR012007

PATIENT
  Sex: Male

DRUGS (118)
  1. RITONAVIR [Suspect]
     Active Substance: RITONAVIR
     Indication: Maternal exposure timing unspecified
     Route: 064
  2. RITONAVIR [Suspect]
     Active Substance: RITONAVIR
     Indication: Maternal exposure timing unspecified
     Dosage: UNK
     Route: 064
     Dates: start: 20100610
  3. RITONAVIR [Suspect]
     Active Substance: RITONAVIR
     Indication: Maternal exposure timing unspecified
     Dosage: UNK
     Dates: start: 20100610
  4. RITONAVIR [Suspect]
     Active Substance: RITONAVIR
     Indication: Maternal exposure timing unspecified
     Dosage: MATERNAL DOSE: UNK
  5. RITONAVIR [Suspect]
     Active Substance: RITONAVIR
     Indication: Maternal exposure timing unspecified
     Dosage: UNK
     Dates: start: 20100610
  6. KALETRA [Suspect]
     Active Substance: LOPINAVIR\RITONAVIR
     Indication: Maternal exposure timing unspecified
     Route: 064
  7. TRUVADA [Suspect]
     Active Substance: EMTRICITABINE\TENOFOVIR DISOPROXIL FUMARATE
     Indication: Maternal exposure timing unspecified
     Route: 064
  8. TRUVADA [Suspect]
     Active Substance: EMTRICITABINE\TENOFOVIR DISOPROXIL FUMARATE
     Indication: Maternal exposure timing unspecified
     Dosage: MATERNAL DOSE: 1 DOSAGE FORM QD 1 TABLET/CAPSULE
     Route: 064
  9. TRUVADA [Suspect]
     Active Substance: EMTRICITABINE\TENOFOVIR DISOPROXIL FUMARATE
     Indication: Maternal exposure timing unspecified
     Dosage: MATERNAL DOSE: 1 DF QD (1 DOSAGE FORM, QD)
     Route: 064
  10. TRUVADA [Suspect]
     Active Substance: EMTRICITABINE\TENOFOVIR DISOPROXIL FUMARATE
     Indication: Maternal exposure timing unspecified
     Dosage: 1 DF, QD (1 DOSAGE FORM, QD;1 TABLET/CAPSULE, QD)
     Route: 048
     Dates: start: 20180205
  11. TRUVADA [Suspect]
     Active Substance: EMTRICITABINE\TENOFOVIR DISOPROXIL FUMARATE
     Indication: Maternal exposure timing unspecified
     Dosage: 1 DOSAGE FORM, QD (MATERNAL DOSE)
     Route: 064
     Dates: start: 20171006, end: 20180205
  12. TRUVADA [Suspect]
     Active Substance: EMTRICITABINE\TENOFOVIR DISOPROXIL FUMARATE
     Indication: Maternal exposure timing unspecified
     Dosage: MATERNAL DOSE: 1 DF, QD
     Dates: start: 20180205
  13. TRUVADA [Suspect]
     Active Substance: EMTRICITABINE\TENOFOVIR DISOPROXIL FUMARATE
     Indication: Maternal exposure timing unspecified
     Dosage: MATERNAL DOSE: 1 DF, QD
     Dates: start: 20171006, end: 20180205
  14. TRUVADA [Suspect]
     Active Substance: EMTRICITABINE\TENOFOVIR DISOPROXIL FUMARATE
     Indication: Maternal exposure timing unspecified
     Dosage: 1 DOSAGE FORM, QD
     Route: 064
     Dates: start: 20180205
  15. TRUVADA [Suspect]
     Active Substance: EMTRICITABINE\TENOFOVIR DISOPROXIL FUMARATE
     Indication: Maternal exposure timing unspecified
     Dosage: 1 DF, QD
     Route: 064
     Dates: start: 20171006
  16. INSULIN ASPART [Suspect]
     Active Substance: INSULIN ASPART
     Indication: Maternal exposure timing unspecified
     Route: 064
  17. INSULIN ASPART [Suspect]
     Active Substance: INSULIN ASPART
     Indication: Maternal exposure timing unspecified
     Dosage: UNK
     Route: 064
  18. INSULIN ASPART [Suspect]
     Active Substance: INSULIN ASPART
     Indication: Maternal exposure timing unspecified
     Dosage: MATERNAL DOSE: UNK
     Route: 064
  19. INSULIN ASPART [Suspect]
     Active Substance: INSULIN ASPART
     Indication: Maternal exposure timing unspecified
     Dosage: MATERNAL DOSE: UNK
     Route: 064
  20. INSULIN ASPART [Suspect]
     Active Substance: INSULIN ASPART
     Indication: Maternal exposure timing unspecified
     Dosage: UNK
     Route: 064
  21. INSULIN ASPART [Suspect]
     Active Substance: INSULIN ASPART
     Indication: Maternal exposure timing unspecified
     Dosage: MATERNAL DOSE: UNK
  22. LAMIVUDINE [Suspect]
     Active Substance: LAMIVUDINE
     Indication: Maternal exposure timing unspecified
     Route: 064
  23. LAMIVUDINE [Suspect]
     Active Substance: LAMIVUDINE
     Indication: Maternal exposure timing unspecified
     Dosage: MATERNAL DOSE: 300 MG ORAL
     Route: 064
     Dates: start: 20090101, end: 20100610
  24. LAMIVUDINE [Suspect]
     Active Substance: LAMIVUDINE
     Indication: Maternal exposure timing unspecified
     Dosage: MATERNAL DOSE: 300 MG
     Route: 064
     Dates: start: 20090101, end: 20100610
  25. EFAVIRENZ [Suspect]
     Active Substance: EFAVIRENZ
     Indication: Maternal exposure timing unspecified
     Route: 064
  26. EFAVIRENZ [Suspect]
     Active Substance: EFAVIRENZ
     Indication: Maternal exposure timing unspecified
     Dosage: 1 DOSAGE FORM, QD
     Route: 064
     Dates: start: 20171006, end: 20180205
  27. EFAVIRENZ [Suspect]
     Active Substance: EFAVIRENZ
     Indication: Maternal exposure timing unspecified
     Dosage: MATERNAL DOSE: 1 DF, QD
     Route: 064
     Dates: start: 20171006, end: 20180205
  28. EFAVIRENZ [Suspect]
     Active Substance: EFAVIRENZ
     Indication: Maternal exposure timing unspecified
     Dosage: MATERNAL DOSE: 1 DF, QD
  29. EFAVIRENZ [Suspect]
     Active Substance: EFAVIRENZ
     Indication: Maternal exposure timing unspecified
     Dosage: 1 DOSAGE FORM, QD
     Route: 064
  30. EFAVIRENZ [Suspect]
     Active Substance: EFAVIRENZ
     Indication: Maternal exposure timing unspecified
     Dosage: UNK
     Route: 064
  31. EFAVIRENZ [Suspect]
     Active Substance: EFAVIRENZ
     Indication: Maternal exposure timing unspecified
     Dosage: MATERNAL DOSE: 1 UG/LITRE, QD (1 TABLET/CAPSULE)
     Route: 064
     Dates: start: 20171006
  32. EFAVIRENZ [Suspect]
     Active Substance: EFAVIRENZ
     Indication: Maternal exposure timing unspecified
     Dosage: 1 DOSAGE FORM, QD
     Route: 064
     Dates: start: 20180205
  33. EFAVIRENZ [Suspect]
     Active Substance: EFAVIRENZ
     Indication: Maternal exposure timing unspecified
     Dosage: 1 DOSAGE FORM
     Route: 064
     Dates: start: 20171006
  34. EMTRICITABINE\TENOFOVIR DISOPROXIL [Suspect]
     Active Substance: EMTRICITABINE\TENOFOVIR DISOPROXIL
     Indication: Maternal exposure timing unspecified
     Route: 064
  35. EMTRICITABINE\TENOFOVIR DISOPROXIL [Suspect]
     Active Substance: EMTRICITABINE\TENOFOVIR DISOPROXIL
     Indication: Maternal exposure timing unspecified
     Dosage: MATERNAL DOSE: 1 DF, QD
     Dates: start: 20180205
  36. EMTRICITABINE\TENOFOVIR DISOPROXIL [Suspect]
     Active Substance: EMTRICITABINE\TENOFOVIR DISOPROXIL
     Indication: Maternal exposure timing unspecified
     Dosage: MATERNAL DOSE: 1 DF, QD
     Dates: start: 20171006, end: 20180205
  37. EMTRICITABINE\TENOFOVIR DISOPROXIL [Suspect]
     Active Substance: EMTRICITABINE\TENOFOVIR DISOPROXIL
     Indication: Maternal exposure timing unspecified
     Dosage: 1 DOSAGE FORM, QD, 1 TABLET/CAPSULE, DAILY
     Route: 048
     Dates: start: 20171006
  38. EMTRICITABINE\TENOFOVIR DISOPROXIL [Suspect]
     Active Substance: EMTRICITABINE\TENOFOVIR DISOPROXIL
     Indication: Maternal exposure timing unspecified
     Dosage: MATERNAL DOSE: 1 DOSAGE FORM
  39. EMTRICITABINE\TENOFOVIR DISOPROXIL [Suspect]
     Active Substance: EMTRICITABINE\TENOFOVIR DISOPROXIL
     Indication: Maternal exposure timing unspecified
     Dosage: MATERNAL DOSE: 1 DF, QD
     Dates: start: 20180205
  40. FOLATE SODIUM [Suspect]
     Active Substance: FOLATE SODIUM
     Indication: Maternal exposure timing unspecified
     Route: 064
  41. FOLATE SODIUM [Suspect]
     Active Substance: FOLATE SODIUM
     Indication: Maternal exposure timing unspecified
     Dosage: UNK
     Route: 064
  42. FOLATE SODIUM [Suspect]
     Active Substance: FOLATE SODIUM
     Indication: Maternal exposure timing unspecified
     Dosage: MATERNAL DOSE: UNKNOWN
     Route: 064
  43. FOLATE SODIUM [Suspect]
     Active Substance: FOLATE SODIUM
     Indication: Maternal exposure timing unspecified
     Dosage: UNK
     Route: 064
  44. FOLATE SODIUM [Suspect]
     Active Substance: FOLATE SODIUM
     Indication: Maternal exposure timing unspecified
     Dosage: MATERNAL DOSE: UNK
  45. FOLIC ACID [Suspect]
     Active Substance: FOLIC ACID
     Indication: Maternal exposure timing unspecified
     Route: 064
  46. FOLIC ACID [Suspect]
     Active Substance: FOLIC ACID
     Indication: Maternal exposure timing unspecified
     Dosage: MATERNAL DOSE: UNK
     Route: 064
  47. FOLIC ACID [Suspect]
     Active Substance: FOLIC ACID
     Indication: Maternal exposure timing unspecified
     Dosage: MATERNAL DOSE: UNK
     Route: 064
  48. FOLIC ACID [Suspect]
     Active Substance: FOLIC ACID
     Indication: Maternal exposure timing unspecified
     Dosage: 1 DF, QD (1 TABLET/CAPSULE, DAILY)
     Route: 064
  49. EFAVIRENZ [Suspect]
     Active Substance: EFAVIRENZ
     Indication: Maternal exposure timing unspecified
     Route: 064
  50. EFAVIRENZ [Suspect]
     Active Substance: EFAVIRENZ
     Indication: Maternal exposure timing unspecified
     Dosage: MATERNAL DOSE: 1 DOSAGE FORM, QD
     Route: 064
  51. EFAVIRENZ [Suspect]
     Active Substance: EFAVIRENZ
     Indication: Maternal exposure timing unspecified
     Dosage: MATERNAL DOSE: 1 DF, QD (1 TABLET/CAPSULE)
     Route: 064
     Dates: start: 20171006
  52. EFAVIRENZ [Suspect]
     Active Substance: EFAVIRENZ
     Indication: Maternal exposure timing unspecified
     Dosage: MATERNAL DOSE: 1 DF, QD (1 TABLET/CAPSULE, DAILY)
     Route: 064
     Dates: start: 20171006, end: 20180205
  53. EFAVIRENZ [Suspect]
     Active Substance: EFAVIRENZ
     Indication: Maternal exposure timing unspecified
     Dosage: MATERNAL DOSE: 1 DF, QD; 1 TABLET/CAPSULE,DAILY
     Route: 064
     Dates: start: 20171006
  54. ZIDOVUDINE [Suspect]
     Active Substance: ZIDOVUDINE
     Indication: Maternal exposure timing unspecified
     Route: 064
  55. ZIDOVUDINE [Suspect]
     Active Substance: ZIDOVUDINE
     Indication: Maternal exposure timing unspecified
     Dosage: MATERNAL DOSE: 800 MG, QD
     Route: 064
     Dates: start: 20100610, end: 20100610
  56. ZIDOVUDINE [Suspect]
     Active Substance: ZIDOVUDINE
     Indication: Maternal exposure timing unspecified
     Dosage: MATERNAL DOSE: 600 MG, QD
     Route: 064
     Dates: start: 20090110, end: 20100610
  57. ZIDOVUDINE [Suspect]
     Active Substance: ZIDOVUDINE
     Indication: Maternal exposure timing unspecified
     Dosage: 800 MILLIGRAM, QD
     Route: 064
     Dates: start: 20090110, end: 20100610
  58. ZIDOVUDINE [Suspect]
     Active Substance: ZIDOVUDINE
     Indication: Maternal exposure timing unspecified
     Dosage: MATERNAL DOSE: 600 MG, QD
     Route: 064
     Dates: start: 20090110, end: 20100610
  59. ZIDOVUDINE [Suspect]
     Active Substance: ZIDOVUDINE
     Indication: Maternal exposure timing unspecified
     Dosage: 600 MILLIGRAM, QD
     Route: 064
     Dates: start: 20090110, end: 20100610
  60. ZIDOVUDINE [Suspect]
     Active Substance: ZIDOVUDINE
     Indication: Maternal exposure timing unspecified
     Dosage: 800 MILLIGRAM, QD
     Route: 064
     Dates: start: 20100610
  61. TENOFOVIR [Suspect]
     Active Substance: TENOFOVIR
     Indication: Maternal exposure timing unspecified
     Route: 064
  62. TENOFOVIR [Suspect]
     Active Substance: TENOFOVIR
     Indication: Maternal exposure timing unspecified
     Dosage: 300 MILLIGRAM, QD
     Route: 064
     Dates: start: 20100610
  63. TENOFOVIR [Suspect]
     Active Substance: TENOFOVIR
     Indication: Maternal exposure timing unspecified
     Dosage: MATERNAL DOSE: 300 MG, QD
     Route: 064
     Dates: start: 20100610
  64. TENOFOVIR [Suspect]
     Active Substance: TENOFOVIR
     Indication: Maternal exposure timing unspecified
     Dosage: UNK
     Dates: start: 20100610
  65. METFORMIN [Suspect]
     Active Substance: METFORMIN HYDROCHLORIDE
     Indication: Maternal exposure timing unspecified
     Route: 064
  66. METFORMIN [Suspect]
     Active Substance: METFORMIN HYDROCHLORIDE
     Indication: Maternal exposure timing unspecified
     Dosage: UNK
     Route: 064
  67. METFORMIN [Suspect]
     Active Substance: METFORMIN HYDROCHLORIDE
     Indication: Maternal exposure timing unspecified
     Dosage: UNK
     Route: 064
  68. METFORMIN [Suspect]
     Active Substance: METFORMIN HYDROCHLORIDE
     Indication: Maternal exposure timing unspecified
     Dosage: UNK
     Route: 064
  69. METFORMIN [Suspect]
     Active Substance: METFORMIN HYDROCHLORIDE
     Indication: Maternal exposure timing unspecified
     Dosage: MATERNAL DOSE: 400 MG, QD
     Route: 064
     Dates: start: 20090101, end: 20100610
  70. METFORMIN [Suspect]
     Active Substance: METFORMIN HYDROCHLORIDE
     Indication: Maternal exposure timing unspecified
     Dosage: UNK
     Route: 064
  71. METFORMIN [Suspect]
     Active Substance: METFORMIN HYDROCHLORIDE
     Indication: Maternal exposure timing unspecified
     Dosage: MATERNAL DOSE: UNK
  72. ISENTRESS [Suspect]
     Active Substance: RALTEGRAVIR POTASSIUM
     Indication: Maternal exposure timing unspecified
     Route: 064
  73. ISENTRESS [Suspect]
     Active Substance: RALTEGRAVIR POTASSIUM
     Indication: Maternal exposure timing unspecified
     Dosage: MATERNAL DOSE: 3200 MG, QD (800 MILLIGRAM, QID)
     Route: 064
     Dates: start: 20100610
  74. ISENTRESS [Suspect]
     Active Substance: RALTEGRAVIR POTASSIUM
     Indication: Maternal exposure timing unspecified
     Dosage: UNK
     Dates: start: 20100610
  75. ISENTRESS [Suspect]
     Active Substance: RALTEGRAVIR POTASSIUM
     Indication: Maternal exposure timing unspecified
     Dosage: 800 MILLIGRAM, Q6H
     Route: 064
     Dates: start: 20100610
  76. ISENTRESS [Suspect]
     Active Substance: RALTEGRAVIR POTASSIUM
     Indication: Maternal exposure timing unspecified
     Dosage: MATERNAL DOSE: 3200 MG, QD (800 MILLIGRAM, QID)
     Route: 064
     Dates: start: 20100610
  77. LABETALOL [Suspect]
     Active Substance: LABETALOL\LABETALOL HYDROCHLORIDE
     Indication: Maternal exposure timing unspecified
     Route: 064
  78. LABETALOL [Suspect]
     Active Substance: LABETALOL\LABETALOL HYDROCHLORIDE
     Indication: Maternal exposure timing unspecified
     Dosage: UNK
     Route: 064
  79. LABETALOL [Suspect]
     Active Substance: LABETALOL\LABETALOL HYDROCHLORIDE
     Indication: Maternal exposure timing unspecified
     Dosage: UNK
     Route: 064
  80. LABETALOL [Suspect]
     Active Substance: LABETALOL\LABETALOL HYDROCHLORIDE
     Indication: Maternal exposure timing unspecified
     Dosage: MATERNAL DOSE: 300 MG
     Route: 064
     Dates: start: 20090101, end: 20100610
  81. LABETALOL [Suspect]
     Active Substance: LABETALOL\LABETALOL HYDROCHLORIDE
     Indication: Maternal exposure timing unspecified
     Dosage: MATERNAL DOSE: 300 MG
     Route: 064
     Dates: start: 20090101, end: 20100610
  82. LABETALOL [Suspect]
     Active Substance: LABETALOL\LABETALOL HYDROCHLORIDE
     Indication: Maternal exposure timing unspecified
     Dosage: MATERNAL DOSE: UNK
  83. EMTRICITABINE [Suspect]
     Active Substance: EMTRICITABINE
     Indication: Maternal exposure timing unspecified
  84. EMTRICITABINE [Suspect]
     Active Substance: EMTRICITABINE
     Indication: Maternal exposure timing unspecified
     Dosage: 1 DOSAGE FORM, QD (1 TABLET/CAPSULE, QD)
     Route: 064
     Dates: start: 20171006
  85. EMTRICITABINE [Suspect]
     Active Substance: EMTRICITABINE
     Indication: Maternal exposure timing unspecified
     Dosage: MATERNAL DOSE: 1 DOSAGE FORM, QD
     Route: 064
     Dates: start: 20180205
  86. INSULIN ASPART [Suspect]
     Active Substance: INSULIN ASPART
     Indication: Maternal exposure timing unspecified
     Route: 064
  87. INSULIN ASPART [Suspect]
     Active Substance: INSULIN ASPART
     Indication: Maternal exposure timing unspecified
     Dosage: MATERNAL DOSE: UNK
     Route: 064
  88. INSULIN ASPART [Suspect]
     Active Substance: INSULIN ASPART
     Indication: Maternal exposure timing unspecified
     Dosage: UNK
     Route: 064
  89. NEVIRAPINE [Suspect]
     Active Substance: NEVIRAPINE
     Indication: Maternal exposure timing unspecified
     Route: 064
  90. NEVIRAPINE [Suspect]
     Active Substance: NEVIRAPINE
     Indication: Maternal exposure timing unspecified
     Dosage: MATERNAL DOSE:400 MG, QD
     Route: 064
     Dates: start: 20090101, end: 20100610
  91. NEVIRAPINE [Suspect]
     Active Substance: NEVIRAPINE
     Indication: Maternal exposure timing unspecified
     Dosage: MATERNAL DOSE:400 MG, QD
     Route: 064
     Dates: start: 20090101, end: 20100610
  92. FOLATE SODIUM [Suspect]
     Active Substance: FOLATE SODIUM
     Indication: Maternal exposure timing unspecified
     Route: 064
  93. FOLATE SODIUM [Suspect]
     Active Substance: FOLATE SODIUM
     Indication: Maternal exposure timing unspecified
     Dosage: 1 DOSAGE FORM, QD ((1 TABLET/CAPSULE, DAILY)
     Route: 064
  94. FOLATE SODIUM [Suspect]
     Active Substance: FOLATE SODIUM
     Indication: Maternal exposure timing unspecified
     Dosage: MATERNAL DOSE: UNK
     Route: 064
  95. FOLATE SODIUM [Suspect]
     Active Substance: FOLATE SODIUM
     Indication: Maternal exposure timing unspecified
     Dosage: UNK
     Route: 064
  96. FOLATE SODIUM [Suspect]
     Active Substance: FOLATE SODIUM
     Indication: Maternal exposure timing unspecified
     Dosage: UNK
     Route: 064
  97. FOLATE SODIUM [Suspect]
     Active Substance: FOLATE SODIUM
     Indication: Maternal exposure timing unspecified
     Dosage: UNK
     Route: 064
  98. VITAMIN B12 [Suspect]
     Active Substance: CYANOCOBALAMIN
     Indication: Maternal exposure timing unspecified
     Route: 064
  99. VITAMIN B12 [Suspect]
     Active Substance: CYANOCOBALAMIN
     Indication: Maternal exposure timing unspecified
     Dosage: MATERNAL DOSE: 800 MG, QD
     Route: 064
     Dates: start: 20090110, end: 20100610
  100. VITAMIN B12 [Suspect]
     Active Substance: CYANOCOBALAMIN
     Indication: Maternal exposure timing unspecified
     Dosage: MATERNAL DOSE: UNK
     Route: 064
     Dates: start: 20100610
  101. LOPINAVIR [Suspect]
     Active Substance: LOPINAVIR
     Indication: Maternal exposure timing unspecified
     Route: 064
  102. LOPINAVIR [Suspect]
     Active Substance: LOPINAVIR
     Indication: Maternal exposure timing unspecified
     Dosage: MATERNAL DOSE: UNK
     Route: 064
     Dates: start: 20100610
  103. LOPINAVIR [Suspect]
     Active Substance: LOPINAVIR
     Indication: Maternal exposure timing unspecified
     Dosage: UNK
     Route: 064
     Dates: start: 20100610
  104. LOPINAVIR\RITONAVIR [Suspect]
     Active Substance: LOPINAVIR\RITONAVIR
     Indication: Maternal exposure timing unspecified
     Dosage: MATERNAL DOSE: UNK
  105. LOPINAVIR\RITONAVIR [Suspect]
     Active Substance: LOPINAVIR\RITONAVIR
     Indication: Maternal exposure timing unspecified
     Dosage: MATERNAL DOSE: UNK
     Dates: end: 20100610
  106. LOPINAVIR\RITONAVIR [Suspect]
     Active Substance: LOPINAVIR\RITONAVIR
     Indication: Maternal exposure timing unspecified
     Dosage: MATERNAL DOSE: UNK
     Route: 064
     Dates: start: 20100610
  107. LOPINAVIR\RITONAVIR [Suspect]
     Active Substance: LOPINAVIR\RITONAVIR
     Indication: Maternal exposure timing unspecified
     Dosage: MATERNAL DOSE: UNK
     Route: 064
     Dates: start: 20100610
  108. CYANOCOBALAMIN [Suspect]
     Active Substance: CYANOCOBALAMIN
     Indication: Maternal exposure timing unspecified
     Route: 064
  109. CYANOCOBALAMIN [Suspect]
     Active Substance: CYANOCOBALAMIN
     Indication: Maternal exposure timing unspecified
     Dosage: MATERNAL DOSE: UNK
     Route: 064
  110. CYANOCOBALAMIN [Suspect]
     Active Substance: CYANOCOBALAMIN
     Indication: Maternal exposure timing unspecified
     Dosage: MATERNAL DOSE: 800 MG, QD
     Route: 064
     Dates: start: 20090110, end: 20100610
  111. CYANOCOBALAMIN [Suspect]
     Active Substance: CYANOCOBALAMIN
     Indication: Maternal exposure timing unspecified
     Dosage: MATERNAL DOSE: UNK
     Route: 064
     Dates: start: 20100610
  112. RALTEGRAVIR [Suspect]
     Active Substance: RALTEGRAVIR
     Indication: Maternal exposure timing unspecified
     Route: 064
  113. TENOFOVIR DISOPROXIL FUMARATE [Suspect]
     Active Substance: TENOFOVIR DISOPROXIL FUMARATE
     Indication: Maternal exposure timing unspecified
     Route: 064
  114. TENOFOVIR DISOPROXIL FUMARATE [Suspect]
     Active Substance: TENOFOVIR DISOPROXIL FUMARATE
     Indication: Maternal exposure timing unspecified
     Dosage: THERAPY START DATE 05-FEB-2018
  115. TENOFOVIR DISOPROXIL FUMARATE [Suspect]
     Active Substance: TENOFOVIR DISOPROXIL FUMARATE
     Indication: Maternal exposure timing unspecified
     Dosage: 1 DF, MATERNAL DOSE: 1 UG/LITRE,
     Route: 064
     Dates: start: 20171006, end: 20180205
  116. TENOFOVIR DISOPROXIL FUMARATE [Suspect]
     Active Substance: TENOFOVIR DISOPROXIL FUMARATE
     Indication: Maternal exposure timing unspecified
     Dosage: 1 DOSAGE FORM, QD THERAPY DATE 06-OCT-2017
     Dates: end: 20180205
  117. TENOFOVIR DISOPROXIL FUMARATE [Suspect]
     Active Substance: TENOFOVIR DISOPROXIL FUMARATE
     Indication: Maternal exposure timing unspecified
     Dosage: 1 DF, QD
     Dates: start: 20171006
  118. TENOFOVIR DISOPROXIL FUMARATE [Suspect]
     Active Substance: TENOFOVIR DISOPROXIL FUMARATE
     Indication: Maternal exposure timing unspecified
     Dosage: 1 DOSAGE FORM, QD
     Route: 064
     Dates: start: 20180205

REACTIONS (5)
  - Cleft lip and palate [Fatal]
  - Trisomy 18 [Fatal]
  - Ultrasound antenatal screen [Fatal]
  - Hydrops foetalis [Fatal]
  - Foetal exposure during pregnancy [Unknown]
